FAERS Safety Report 5167602-9 (Version None)
Quarter: 2006Q4

REPORT INFORMATION
  Report Type: 
  Country: None (occurrence: None)
  Receive Date: 20060919
  Receipt Date: 20060801
  Transmission Date: 20070319
  Serious: No
  Sender: FDA-Public Use
  Company Number: BDI-008486

PATIENT
  Age: 43 Year
  Sex: Female
  Weight: 56.36 kg

DRUGS (6)
  1. MULTIHANCE [Suspect]
     Indication: HEPATOMEGALY
     Dosage: 20 ML ONCE IV
     Route: 042
     Dates: start: 20060801, end: 20060801
  2. MULTIHANCE [Suspect]
     Indication: NUCLEAR MAGNETIC RESONANCE IMAGING
     Dosage: 20 ML ONCE IV
     Route: 042
     Dates: start: 20060801, end: 20060801
  3. MULTIHANCE [Suspect]
     Indication: HEPATOMEGALY
     Dosage: 5 ML ONCE IV
     Route: 042
     Dates: start: 20060801, end: 20060801
  4. MULTIHANCE [Suspect]
     Indication: NUCLEAR MAGNETIC RESONANCE IMAGING
     Dosage: 5 ML ONCE IV
     Route: 042
     Dates: start: 20060801, end: 20060801
  5. CLARITIN [Concomitant]
  6. HEART MEDICATION [Concomitant]

REACTIONS (1)
  - HYPERSENSITIVITY [None]
